FAERS Safety Report 9341458 (Version 1)
Quarter: 2013Q2

REPORT INFORMATION
  Report Type: Spontaneous
  Country: US (occurrence: None)
  Receive Date: 20130610
  Receipt Date: 20130610
  Transmission Date: 20140414
  Serious: No
  Sender: FDA-Public Use
  Company Number: None

PATIENT
  Age: 60 Year
  Sex: Female
  Weight: 48.08 kg

DRUGS (1)
  1. FLEXERIL [Suspect]
     Indication: FIBROMYALGIA
     Dates: start: 20130115

REACTIONS (1)
  - VIIth nerve paralysis [None]
